FAERS Safety Report 24582149 (Version 1)
Quarter: 2024Q4

REPORT INFORMATION
  Report Type: Spontaneous
  Country: US (occurrence: US)
  Receive Date: 20241105
  Receipt Date: 20241105
  Transmission Date: 20250115
  Serious: No
  Sender: LEO PHARM
  Company Number: US-LEO Pharma-374759

PATIENT
  Age: 20 Year
  Sex: Female

DRUGS (1)
  1. ADBRY [Suspect]
     Active Substance: TRALOKINUMAB-LDRM
     Indication: Dermatitis atopic
     Dosage: THERAPY IS STILL ONGOING
     Route: 058

REACTIONS (3)
  - Pruritus [Unknown]
  - Urticaria [Unknown]
  - Rash [Unknown]
